FAERS Safety Report 10044317 (Version 2)
Quarter: 2014Q1

REPORT INFORMATION
  Report Type: Spontaneous
  Country: SE (occurrence: SE)
  Receive Date: 20140328
  Receipt Date: 20140328
  Transmission Date: 20141002
  Serious: Yes (Other)
  Sender: FDA-Public Use
  Company Number: SE-PFIZER INC-2014075677

PATIENT
  Age: 75 Year
  Sex: Male

DRUGS (6)
  1. DOSTINEX [Suspect]
     Indication: BLOOD PROLACTIN INCREASED
     Dosage: 0.5 MG, WEEKLY
     Route: 048
     Dates: start: 20140211, end: 2014
  2. DOSTINEX [Interacting]
     Indication: PROLACTINOMA
  3. HALDOL [Interacting]
     Dosage: 1 MG, 1X/DAY
     Dates: start: 201312
  4. ENALAPRIL [Concomitant]
     Dosage: 5 MG, 1X/DAY
     Dates: start: 1990
  5. ISOPTIN RETARD [Concomitant]
     Dosage: 120 MG, 2X/DAY
     Dates: start: 1990
  6. CITALOPRAM [Concomitant]
     Dosage: 10 MG, 1X/DAY
     Dates: start: 201312

REACTIONS (1)
  - Drug interaction [Unknown]
